FAERS Safety Report 22288083 (Version 3)
Quarter: 2024Q4

REPORT INFORMATION
  Report Type: Spontaneous
  Country: US (occurrence: US)
  Receive Date: 20230505
  Receipt Date: 20241223
  Transmission Date: 20250114
  Serious: Yes (Hospitalization)
  Sender: SANOFI AVENTIS
  Company Number: US-SA-SAC20230504000047

PATIENT
  Age: 61 Year
  Sex: Female
  Weight: 134.55 kg

DRUGS (3)
  1. DUPIXENT [Suspect]
     Active Substance: DUPILUMAB
     Indication: Asthma
     Dosage: 300 MG, QOW
     Route: 058
  2. AREXVY [Suspect]
     Active Substance: RECOMBINANT RESPIRATORY SYNCYTIAL VIRUS PRE-FUSION F PROTEIN ANTIGEN
     Dosage: UNK
  3. WEGOVY [Concomitant]
     Active Substance: SEMAGLUTIDE

REACTIONS (6)
  - Hospitalisation [Unknown]
  - Hypersensitivity [Unknown]
  - Eye pruritus [Unknown]
  - Lacrimation increased [Unknown]
  - Upper-airway cough syndrome [Unknown]
  - Swelling [Unknown]

NARRATIVE: CASE EVENT DATE: 20220101
